FAERS Safety Report 23548506 (Version 1)
Quarter: 2024Q1

REPORT INFORMATION
  Report Type: Spontaneous
  Country: US (occurrence: None)
  Receive Date: 20240219
  Receipt Date: 20240219
  Transmission Date: 20240410
  Serious: Yes (Disabling, Other)
  Sender: FDA-Public Use
  Company Number: None

PATIENT
  Age: 35 Year
  Sex: Female
  Weight: 72 kg

DRUGS (1)
  1. ESCITALOPRAM [Suspect]
     Active Substance: ESCITALOPRAM OXALATE
     Dates: start: 20240103, end: 20240112

REACTIONS (4)
  - Emotional poverty [None]
  - Anhedonia [None]
  - Disturbance in sexual arousal [None]
  - Anorgasmia [None]

NARRATIVE: CASE EVENT DATE: 20240108
